FAERS Safety Report 13420390 (Version 2)
Quarter: 2018Q1

REPORT INFORMATION
  Report Type: Spontaneous
  Country: IT (occurrence: IT)
  Receive Date: 20170407
  Receipt Date: 20180217
  Transmission Date: 20180508
  Serious: Yes (Other)
  Sender: FDA-Public Use
  Company Number: IT-AUROBINDO-AUR-APL-2017-30807

PATIENT
  Age: 44 Year
  Sex: Female

DRUGS (3)
  1. PARACETAMOL [Suspect]
     Active Substance: ACETAMINOPHEN
     Indication: PRODUCT USED FOR UNKNOWN INDICATION
     Dosage: UNK
     Route: 048
  2. BISOLVON [Suspect]
     Active Substance: BROMHEXINE HYDROCHLORIDE
     Indication: DECREASED BRONCHIAL SECRETION
     Route: 065
  3. PARACODINA                         /00063002/ [Suspect]
     Active Substance: ASPIRIN\CAFFEINE\DIHYDROCODEINE BITARTRATE
     Indication: COUGH
     Route: 048

REACTIONS (5)
  - Face oedema [Unknown]
  - Feeling hot [Unknown]
  - Flushing [Unknown]
  - Rash [Unknown]
  - Urticaria [Unknown]

NARRATIVE: CASE EVENT DATE: 20161006
